FAERS Safety Report 8068713-0 (Version None)
Quarter: 2012Q1

REPORT INFORMATION
  Report Type: 
  Country: None (occurrence: None)
  Receive Date: 20120124
  Receipt Date: 20111214
  Transmission Date: 20120608
  Serious: No
  Sender: FDA-Public Use
  Company Number: US-AMGEN-USASP2011045382

PATIENT
  Age: 87 Year
  Sex: Female
  Weight: 53.061 kg

DRUGS (8)
  1. CALTRATE +D [Concomitant]
     Dosage: UNK MG, UNK
  2. DIOVAN [Concomitant]
     Dosage: UNK
  3. PANTOPRAZOLE [Concomitant]
     Dosage: UNK MG, UNK
  4. PRAVASTATIN [Concomitant]
     Dosage: UNK
  5. PLAVIX [Concomitant]
     Dosage: UNK
  6. PROLIA [Suspect]
     Indication: OSTEOPOROSIS POSTMENOPAUSAL
     Dosage: UNK
     Route: 058
     Dates: start: 20110801
  7. LOVAZA [Concomitant]
     Dosage: UNK
  8. SYNTHROID [Concomitant]
     Dosage: UNK

REACTIONS (3)
  - RASH [None]
  - NAIL DISORDER [None]
  - MUSCLE SPASMS [None]
